FAERS Safety Report 9008801 (Version 1)
Quarter: 2013Q1

REPORT INFORMATION
  Report Type: Spontaneous
  Country: MX (occurrence: MX)
  Receive Date: 20130111
  Receipt Date: 20130111
  Transmission Date: 20140127
  Serious: Yes (Death, Hospitalization)
  Sender: FDA-Public Use
  Company Number: MX-UCBSA-074622

PATIENT
  Age: 21 Month
  Sex: Male
  Weight: 8 kg

DRUGS (1)
  1. KEPPRA [Suspect]
     Indication: EPILEPSY
     Route: 048
     Dates: start: 20120912, end: 20121226

REACTIONS (5)
  - Pneumonia [Fatal]
  - Cardio-respiratory arrest [Fatal]
  - Aspiration bronchial [Fatal]
  - Respiratory distress [Fatal]
  - Convulsion [Unknown]
